FAERS Safety Report 5712449-5 (Version None)
Quarter: 2008Q2

REPORT INFORMATION
  Report Type: 
  Country: None (occurrence: None)
  Receive Date: 20080422
  Receipt Date: 20080416
  Transmission Date: 20081010
  Serious: Yes (Other)
  Sender: FDA-Public Use
  Company Number: US-ALLERGAN-0803899US

PATIENT
  Sex: Female

DRUGS (2)
  1. BOTOX [Suspect]
     Indication: HYPERHIDROSIS
     Dosage: 400 UNITS, SINGLE
     Route: 023
  2. BOTOX [Suspect]
     Dosage: 400 UNITS, SINGLE
     Route: 023

REACTIONS (1)
  - MUSCULAR WEAKNESS [None]
